FAERS Safety Report 7729545-3 (Version None)
Quarter: 2011Q3

REPORT INFORMATION
  Report Type: 
  Country: None (occurrence: None)
  Receive Date: 20110906
  Receipt Date: 20110826
  Transmission Date: 20111222
  Serious: Yes (Hospitalization, Other)
  Sender: FDA-Public Use
  Company Number: PHHY2011GB70156

PATIENT
  Age: 44 Year
  Sex: Male

DRUGS (3)
  1. OLANZAPINE [Suspect]
     Dosage: UNK
  2. BISOPROLOL FUMARATE [Suspect]
     Dosage: UNK
  3. ACETAMINOPHEN [Suspect]
     Dosage: UNK

REACTIONS (17)
  - HYPOTENSION [None]
  - BRADYCARDIA [None]
  - ASPERGILLOMA [None]
  - MALNUTRITION [None]
  - ASTHENIA [None]
  - WEIGHT DECREASED [None]
  - HYPOPHOSPHATAEMIA [None]
  - HYPOKALAEMIA [None]
  - PNEUMONIA [None]
  - HYPOTHERMIA [None]
  - COMA [None]
  - HYPOGLYCAEMIA [None]
  - MULTIPLE DRUG OVERDOSE INTENTIONAL [None]
  - FALL [None]
  - LIVER FUNCTION TEST ABNORMAL [None]
  - TRANSAMINASES INCREASED [None]
  - SEPSIS [None]
